FAERS Safety Report 8257477-3 (Version None)
Quarter: 2012Q2

REPORT INFORMATION
  Report Type: 
  Country: None (occurrence: None)
  Receive Date: 20120403
  Receipt Date: 20120329
  Transmission Date: 20120825
  Serious: Yes (Death, Other)
  Sender: FDA-Public Use
  Company Number: PHHY2012CO011716

PATIENT
  Sex: Male

DRUGS (3)
  1. FLUOROURACIL [Suspect]
     Indication: RECTAL CANCER
     Dosage: 895 MG, UNK
     Route: 042
     Dates: start: 20111117
  2. LEUCOVORIN CALCIUM [Concomitant]
  3. ONDANSETRON [Concomitant]

REACTIONS (2)
  - DEATH [None]
  - MUCOSAL INFLAMMATION [None]
